FAERS Safety Report 5242305-0 (Version None)
Quarter: 2007Q1

REPORT INFORMATION
  Report Type: 
  Country: None (occurrence: None)
  Receive Date: 20070216
  Receipt Date: 20070216
  Transmission Date: 20070707
  Serious: Yes (Hospitalization)
  Sender: FDA-Public Use
  Company Number: None

PATIENT
  Age: 72 Year
  Sex: Male

DRUGS (5)
  1. WARFARIN SODIUM [Suspect]
     Indication: SURGERY
     Dosage: 3.75MG MWF 7.5MG ALL OTHER DAYS
     Dates: start: 20010201
  2. LISINOPRIL [Concomitant]
  3. FELODIPINE [Concomitant]
  4. VARDENAFIL [Concomitant]
  5. TRAMADOL HCL [Concomitant]

REACTIONS (1)
  - EPISTAXIS [None]
